FAERS Safety Report 20603257 (Version 1)
Quarter: 2022Q1

REPORT INFORMATION
  Report Type: Other
  Country: None (occurrence: US)
  Receive Date: 20220316
  Receipt Date: 20220316
  Transmission Date: 20220423
  Serious: Yes (Hospitalization)
  Sender: FDA-Public Use
  Company Number: US-Avondale Pharmaceuticals, LLC-2126845

PATIENT
  Age: 16 Year
  Sex: Female

DRUGS (4)
  1. SSKI [Suspect]
     Active Substance: POTASSIUM IODIDE
     Indication: Basedow^s disease
     Route: 065
  2. HYDROCORTISONE (HYDROCORTISONE ACETATE) [Suspect]
     Active Substance: HYDROCORTISONE ACETATE
     Route: 042
  3. UNSPECIFIED INGREDIENT [Suspect]
     Active Substance: UNSPECIFIED INGREDIENT
     Route: 065
  4. CHOLESTYRAMINE [Suspect]
     Active Substance: CHOLESTYRAMINE
     Route: 065

REACTIONS (1)
  - Drug ineffective [Unknown]
